FAERS Safety Report 7214806-7 (Version None)
Quarter: 2011Q1

REPORT INFORMATION
  Report Type: 
  Country: None (occurrence: None)
  Receive Date: 20110107
  Receipt Date: 20100305
  Transmission Date: 20110831
  Serious: No
  Sender: FDA-Public Use
  Company Number: A0848686A

PATIENT
  Sex: Female

DRUGS (1)
  1. LOVAZA [Suspect]
     Route: 048

REACTIONS (3)
  - FLATULENCE [None]
  - DIARRHOEA [None]
  - FAECES DISCOLOURED [None]
